FAERS Safety Report 5844636-X (Version None)
Quarter: 2008Q3

REPORT INFORMATION
  Report Type: 
  Country: None (occurrence: None)
  Receive Date: 20080812
  Receipt Date: 20080729
  Transmission Date: 20090109
  Serious: Yes (Hospitalization)
  Sender: FDA-Public Use
  Company Number: 2008001798

PATIENT
  Sex: Female

DRUGS (14)
  1. ERLOTINIB (ERLOTINIB) (TABLET) (ERLOTINIB) [Suspect]
     Indication: PANCREATIC CARCINOMA
     Dosage: 100 MG, QD, ORAL
     Route: 048
     Dates: start: 20080117, end: 20080721
  2. SENNA (SENNA) [Concomitant]
  3. DOCUSATE CALCIUM (DOCUSATE CALCIUM) [Concomitant]
  4. METOCLOPRAMIDE [Concomitant]
  5. CODEINE SUL TAB [Concomitant]
  6. VIOCASE [Concomitant]
  7. NOVORAPID (INSULIN ASPART) [Concomitant]
  8. LEVEMIR [Concomitant]
  9. PANTOPRAZOLE SODIUM [Concomitant]
  10. MAGLUCASE [Concomitant]
  11. IRON (IRON) [Concomitant]
  12. VITAMIN E [Concomitant]
  13. SYNTHROID [Concomitant]
  14. ASPIRIN [Concomitant]

REACTIONS (1)
  - URINARY BLADDER HAEMORRHAGE [None]
